FAERS Safety Report 10289692 (Version 1)
Quarter: 2014Q3

REPORT INFORMATION
  Report Type: Spontaneous
  Country: PL (occurrence: None)
  Receive Date: 20140708
  Receipt Date: 20140708
  Transmission Date: 20150326
  Serious: Yes (Death, Hospitalization)
  Sender: FDA-Public Use
  Company Number: VAL_03189_2014

PATIENT
  Age: 23 Year
  Sex: Male

DRUGS (1)
  1. CARBAMAZEPINE (CARBAMAZEPINE) [Suspect]
     Active Substance: CARBAMAZEPINE
     Indication: PRODUCT USED FOR UNKNOWN INDICATION
     Dosage: SUICIDAL CARBAMAZEPINE INTOXICATION

REACTIONS (8)
  - Cardiac arrest [None]
  - Completed suicide [None]
  - Brain death [None]
  - Unresponsive to stimuli [None]
  - Cardiovascular insufficiency [None]
  - Respiratory failure [None]
  - Loss of consciousness [None]
  - Toxicity to various agents [None]
